FAERS Safety Report 12394658 (Version 2)
Quarter: 2016Q2

REPORT INFORMATION
  Report Type: Spontaneous
  Country: US (occurrence: US)
  Receive Date: 20160523
  Receipt Date: 20160606
  Transmission Date: 20160815
  Serious: Yes (Hospitalization)
  Sender: FDA-Public Use
  Company Number: US-SMITH AND NEPHEW, INC-2016SMT00414

PATIENT
  Sex: Female
  Weight: 69.39 kg

DRUGS (6)
  1. UNSPECIFIED PILLS FOR DIABETES [Concomitant]
  2. REGRANEX [Suspect]
     Active Substance: BECAPLERMIN
     Indication: SKIN ULCER
     Dosage: UNK, 1X/DAY
     Route: 061
     Dates: start: 2016, end: 2016
  3. INSULIN (UNSPECIFIED) [Concomitant]
     Dosage: UNK, 1X/DAY
     Route: 051
  4. UNSPECIFIED MEDICATION FOR HIGH BLOOD PRESSURE [Concomitant]
  5. REGRANEX [Suspect]
     Active Substance: BECAPLERMIN
     Dosage: UNK
     Dates: start: 2016
  6. UNSPECIFIED MEDICATION (IF BLOOD SUGAR IS TOO LOW) [Concomitant]
     Dosage: UNK, AS NEEDED

REACTIONS (3)
  - Wound complication [Unknown]
  - Incorrect drug administration duration [Unknown]
  - Toe operation [Unknown]

NARRATIVE: CASE EVENT DATE: 2016
